FAERS Safety Report 7852219 (Version 5)
Quarter: 2013Q2

REPORT INFORMATION
  Report Type: Spontaneous
  Country: US (occurrence: US)
  Receive Date: 20110311
  Receipt Date: 20130612
  Transmission Date: 20140414
  Serious: Yes (Other)
  Sender: FDA-Public Use
  Company Number: US-JNJFOC-20101007503

PATIENT
  Age: 54 Year
  Sex: Male

DRUGS (3)
  1. LEVAQUIN [Suspect]
     Indication: COUGH
     Route: 048
     Dates: start: 200801, end: 200902
  2. LEVAQUIN [Suspect]
     Indication: RESPIRATORY TRACT CONGESTION
     Route: 048
     Dates: start: 200801, end: 200902
  3. LEVAQUIN [Suspect]
     Indication: INFLUENZA
     Route: 048
     Dates: start: 200801, end: 200902

REACTIONS (9)
  - Depression [Unknown]
  - Rotator cuff syndrome [Unknown]
  - Rotator cuff syndrome [Unknown]
  - Tendon rupture [Unknown]
  - Rotator cuff syndrome [Unknown]
  - Tendon rupture [Unknown]
  - Joint injury [Unknown]
  - Epicondylitis [Recovering/Resolving]
  - Stress [Unknown]
